FAERS Safety Report 8574361 (Version 2)
Quarter: 2013Q2

REPORT INFORMATION
  Report Type: Spontaneous
  Country: US (occurrence: US)
  Receive Date: 20120522
  Receipt Date: 20130603
  Transmission Date: 20140414
  Serious: No
  Sender: FDA-Public Use
  Company Number: US-PFIZER INC-2012122949

PATIENT
  Age: 71 Year
  Sex: Female
  Weight: 91 kg

DRUGS (7)
  1. EFFEXOR XR [Suspect]
     Indication: NERVOUSNESS
     Dosage: 150 MG, 2X/DAY
     Route: 048
     Dates: end: 201108
  2. EFFEXOR XR [Suspect]
     Indication: DEPRESSION
     Dosage: 150 MG, 2X/DAY
     Route: 048
     Dates: start: 201110, end: 2012
  3. EFFEXOR XR [Suspect]
     Dosage: 150 MG, 1X/DAY
     Route: 048
     Dates: start: 2012
  4. VENLAFAXINE HCL [Suspect]
     Indication: NERVOUSNESS
     Dosage: 150 MG, 2X/DAY
     Route: 048
     Dates: start: 201108, end: 201110
  5. VENLAFAXINE HCL [Suspect]
     Indication: DEPRESSION
  6. LANTUS [Concomitant]
     Indication: DIABETES MELLITUS
     Dosage: UNK
  7. NOVOLOG MIX 70/30 [Concomitant]
     Indication: DIABETES MELLITUS
     Dosage: UNK

REACTIONS (4)
  - Blood glucose increased [Unknown]
  - Drug ineffective [Unknown]
  - Depression [Unknown]
  - Product quality issue [Unknown]
